FAERS Safety Report 9173516 (Version 1)
Quarter: 2013Q1

REPORT INFORMATION
  Report Type: Spontaneous
  Country: IE (occurrence: IE)
  Receive Date: 20130320
  Receipt Date: 20130320
  Transmission Date: 20140127
  Serious: Yes (Other)
  Sender: FDA-Public Use
  Company Number: IE-ELI_LILLY_AND_COMPANY-IE201302003655

PATIENT
  Sex: Male

DRUGS (10)
  1. FORSTEO [Suspect]
     Indication: OSTEOPOROSIS
     Dosage: 20 UG, QD
     Route: 058
     Dates: start: 20130201
  2. TRAMADOL [Concomitant]
     Dosage: UNK, UNKNOWN
     Route: 065
  3. OMNEXEL [Concomitant]
     Dosage: UNK, UNKNOWN
     Route: 065
  4. CALCIUM CARBONATE [Concomitant]
     Dosage: UNK, UNKNOWN
     Route: 065
  5. LANOXIN [Concomitant]
     Dosage: UNK, UNKNOWN
  6. CARDICOR [Concomitant]
     Dosage: UNK, UNKNOWN
     Route: 065
  7. WARFARIN [Concomitant]
     Dosage: UNK, UNKNOWN
     Route: 065
  8. FRUMIL [Concomitant]
     Dosage: UNK, UNKNOWN
     Route: 065
  9. GALFER [Concomitant]
     Dosage: UNK, UNKNOWN
     Route: 065
  10. PARACETAMOL [Concomitant]

REACTIONS (4)
  - Palpitations [Not Recovered/Not Resolved]
  - Insomnia [Unknown]
  - Night sweats [Unknown]
  - Bone pain [Unknown]
